FAERS Safety Report 5465925-7 (Version None)
Quarter: 2007Q3

REPORT INFORMATION
  Report Type: 
  Country: None (occurrence: None)
  Receive Date: 20070924
  Receipt Date: 20040916
  Transmission Date: 20080115
  Serious: Yes (Hospitalization)
  Sender: FDA-Public Use
  Company Number: NL-PFIZER INC-2006120740

PATIENT
  Age: 75 Year
  Sex: Female

DRUGS (8)
  1. IRINOTECAN HCL [Suspect]
     Indication: COLON CANCER
     Dosage: DAILY DOSE:460MG
     Route: 042
     Dates: start: 20040823, end: 20040823
  2. CAPECITABINE [Suspect]
     Indication: COLON CANCER
     Dosage: DAILY DOSE:3600MG
     Route: 048
     Dates: start: 20040823, end: 20040905
  3. ASCAL [Concomitant]
     Dosage: DAILY DOSE:80MG-FREQ:EVERY DAY
  4. COZAAR [Concomitant]
     Dosage: DAILY DOSE:50MG-FREQ:EVERY DAY
  5. ENALAPRIL MALEATE [Concomitant]
     Dosage: DAILY DOSE:20MG-FREQ:EVERY DAY
  6. OMEPRAZOLE [Concomitant]
     Dosage: DAILY DOSE:20MG-FREQ:EVERY DAY
  7. SIMVASTATIN [Concomitant]
     Dosage: DAILY DOSE:20MG-FREQ:EVERY DAY
  8. SOTALOL HYDROCHLORIDE [Concomitant]
     Dosage: DAILY DOSE:80MG

REACTIONS (1)
  - URINARY RETENTION [None]
